FAERS Safety Report 13653981 (Version 1)
Quarter: 2017Q2

REPORT INFORMATION
  Report Type: Spontaneous
  Country: US (occurrence: US)
  Receive Date: 20170614
  Receipt Date: 20170614
  Transmission Date: 20170830
  Serious: Yes (Other)
  Sender: FDA-Public Use
  Company Number: US-SHIRE-US201712394

PATIENT
  Age: 33 Year
  Sex: Female

DRUGS (1)
  1. ADDERALL XR [Suspect]
     Active Substance: AMPHETAMINE ASPARTATE\AMPHETAMINE SULFATE\DEXTROAMPHETAMINE SACCHARATE\DEXTROAMPHETAMINE SULFATE
     Indication: ATTENTION DEFICIT/HYPERACTIVITY DISORDER
     Dosage: 90 MG, UNKNOWN
     Route: 048

REACTIONS (10)
  - Tumour invasion [Unknown]
  - Drug use disorder [Unknown]
  - Tumour haemorrhage [Unknown]
  - Stress [Unknown]
  - Drug effect increased [Unknown]
  - Overdose [Not Recovered/Not Resolved]
  - Therapeutic response unexpected [Unknown]
  - Libido increased [Unknown]
  - Anorgasmia [Unknown]
  - Anaemia [Unknown]
